FAERS Safety Report 4802919-6 (Version None)
Quarter: 2005Q4

REPORT INFORMATION
  Report Type: 
  Country: None (occurrence: None)
  Receive Date: 20051017
  Receipt Date: 20051017
  Transmission Date: 20060501
  Serious: Yes (Hospitalization)
  Sender: FDA-Public Use
  Company Number: None

PATIENT
  Age: 43 Year
  Sex: Male

DRUGS (14)
  1. QUETIAPINE FUMARATE [Suspect]
     Indication: POST-TRAUMATIC STRESS DISORDER
     Dosage: 200MG PO TID
     Route: 048
     Dates: start: 20041002, end: 20050706
  2. OMEPRAZOLE [Concomitant]
  3. PROMETHAZINE HCL [Concomitant]
  4. OLANZAPINE [Concomitant]
  5. PRAZOSIN HCL [Concomitant]
  6. QUETIAPINE FUMARATE [Concomitant]
  7. TRAZODONE HCL [Concomitant]
  8. IBUPROFEN [Concomitant]
  9. FELODIPINE [Concomitant]
  10. METOCLOPRAMIDE HCL [Concomitant]
  11. MULTI-VITAMIN [Concomitant]
  12. FLUNISOLIDE NASAL SPRAY [Concomitant]
  13. POTASSIUM CHLORIDE [Concomitant]
  14. LOPERAMIDE HCL [Concomitant]

REACTIONS (1)
  - ELECTROCARDIOGRAM QT PROLONGED [None]
